FAERS Safety Report 8960175 (Version 1)
Quarter: 2012Q4

REPORT INFORMATION
  Report Type: 
  Country: BR (occurrence: BR)
  Receive Date: 20121211
  Receipt Date: 20121211
  Transmission Date: 20130627
  Serious: Yes (Other)
  Sender: FDA-Public Use
  Company Number: BR-B.I. PHARMACEUTICALS,INC./RIDGEFIELD-2012-BR-01360BR

PATIENT
  Age: 71 Year
  Sex: Male
  Weight: 176 kg

DRUGS (3)
  1. ATENSINA [Suspect]
     Indication: HYPERTENSION
     Dosage: 300 mg
     Route: 048
     Dates: start: 2003
  2. ATENOLOL [Suspect]
     Indication: HYPERTENSION
     Dosage: 150 mg
     Route: 048
     Dates: start: 2003, end: 20121118
  3. DIOVAN [Suspect]
     Indication: HYPERTENSION
     Dosage: 320 mg
     Route: 048
     Dates: start: 2003

REACTIONS (1)
  - Hypertension [Unknown]
